FAERS Safety Report 23976550 (Version 1)
Quarter: 2024Q2

REPORT INFORMATION
  Report Type: Report from Study
  Country: DE (occurrence: DE)
  Receive Date: 20240614
  Receipt Date: 20240614
  Transmission Date: 20240716
  Serious: Yes (Hospitalization, Other)
  Sender: FDA-Public Use
  Company Number: DE-SUN PHARMACEUTICAL INDUSTRIES LTD-2024R1-451014

PATIENT
  Sex: Female

DRUGS (2)
  1. EMPAGLIFLOZIN [Suspect]
     Active Substance: EMPAGLIFLOZIN
     Indication: Neutropenia
     Dosage: 0.4 MILLIGRAM/KILOGRAM, DAILY
     Route: 065
  2. EMPAGLIFLOZIN [Suspect]
     Active Substance: EMPAGLIFLOZIN
     Indication: Neutrophilia
     Dosage: 0.34 MILLIGRAM/KILOGRAM, DAILY
     Route: 065

REACTIONS (2)
  - Fungal infection [Unknown]
  - Off label use [Unknown]
